FAERS Safety Report 11637874 (Version 3)
Quarter: 2015Q4

REPORT INFORMATION
  Report Type: Spontaneous
  Country: US (occurrence: None)
  Receive Date: 20151016
  Receipt Date: 20151116
  Transmission Date: 20160304
  Serious: Yes (Death, Other)
  Sender: FDA-Public Use
  Company Number: US-MDT-ADR-2015-01975

PATIENT
  Age: 50 Year
  Sex: Male

DRUGS (1)
  1. LIORESAL [Suspect]
     Active Substance: BACLOFEN
     Indication: MUSCLE SPASTICITY
     Dosage: 630.6 MCG/DAY

REACTIONS (5)
  - Complication of device removal [None]
  - Throat cancer [None]
  - Muscle spasticity [None]
  - Squamous cell carcinoma [None]
  - Device damage [None]
